FAERS Safety Report 18602106 (Version 11)
Quarter: 2024Q2

REPORT INFORMATION
  Report Type: Report from Study
  Country: DE (occurrence: DE)
  Receive Date: 20201210
  Receipt Date: 20240430
  Transmission Date: 20240716
  Serious: Yes (Death, Hospitalization, Other)
  Sender: FDA-Public Use
  Company Number: DE-BOEHRINGERINGELHEIM-2020-BI-066110

PATIENT
  Age: 59 Year
  Sex: Female
  Weight: 78 kg

DRUGS (22)
  1. NINTEDANIB [Suspect]
     Active Substance: NINTEDANIB
     Indication: Lung adenocarcinoma
     Route: 048
     Dates: start: 20201128, end: 20201214
  2. DOCETAXEL [Suspect]
     Active Substance: DOCETAXEL\DOCETAXEL ANHYDROUS
     Indication: Lung adenocarcinoma
     Dosage: FOA - LIQUID
     Route: 042
     Dates: start: 20201126
  3. Keppa 500 mg [Concomitant]
     Indication: Product used for unknown indication
     Dosage: 1-0-1
  4. MST 30 mg [Concomitant]
     Indication: Product used for unknown indication
     Dosage: 2-0-2
  5. PANTOPRAZOLE SODIUM [Concomitant]
     Active Substance: PANTOPRAZOLE SODIUM
     Indication: Product used for unknown indication
     Dosage: 1-0-1
  6. CERTOPARIN SODIUM [Concomitant]
     Active Substance: CERTOPARIN SODIUM
     Indication: Product used for unknown indication
     Dosage: 0-0-1
     Route: 058
  7. Novaminsulfon AbZ 500 mg [Concomitant]
     Indication: Product used for unknown indication
     Dosage: 2-2-2-2
  8. L-Thyroxin Aristo 75 mcg [Concomitant]
     Indication: Product used for unknown indication
     Dosage: 1-0-0
  9. Decamethason 0.5 mg [Concomitant]
     Indication: Product used for unknown indication
     Dosage: 2-2-2-2
  10. Ondasetron 4 mg [Concomitant]
     Indication: Product used for unknown indication
     Dosage: 1-1-1
  11. Macrogol plus granulate bag [Concomitant]
     Indication: Product used for unknown indication
     Dosage: IF REQUIED
  12. Etoricoxib 120 mg [Concomitant]
     Indication: Product used for unknown indication
     Dosage: 1-0-0
  13. Alizaprid 50 mg [Concomitant]
     Indication: Product used for unknown indication
     Dosage: 1-1-1
     Dates: start: 20201130, end: 20201206
  14. Piperacillin 4g [Concomitant]
     Indication: Product used for unknown indication
     Dosage: 1-1-1
     Dates: start: 20201129, end: 20201207
  15. Tazobactam 0.5g [Concomitant]
     Indication: Product used for unknown indication
     Dates: start: 20201129, end: 20201207
  16. IBANDRONIC ACID [Concomitant]
     Active Substance: IBANDRONIC ACID
     Indication: Product used for unknown indication
     Dates: start: 20160405, end: 20210128
  17. Dexamethasone 4.5 mg [Concomitant]
     Indication: Product used for unknown indication
     Dosage: 2-2-2-2
     Dates: start: 20201106, end: 20201125
  18. Dexamethasone 4.5 mg [Concomitant]
     Dates: start: 20201127, end: 20201207
  19. Dexamethasone 4.5 mg [Concomitant]
     Route: 042
     Dates: start: 20201126
  20. Dexamethasone 4.5 mg [Concomitant]
     Route: 042
     Dates: start: 20201217
  21. Dexamethasone 4.5 mg [Concomitant]
     Route: 042
     Dates: start: 20210107
  22. Dexamethasone 4.5 mg [Concomitant]
     Route: 042
     Dates: start: 20210128

REACTIONS (6)
  - Sepsis [Fatal]
  - Febrile neutropenia [Recovered/Resolved]
  - Diarrhoea [Recovered/Resolved]
  - Alopecia [Not Recovered/Not Resolved]
  - White blood cell count decreased [Recovered/Resolved]
  - Diarrhoea [Not Recovered/Not Resolved]

NARRATIVE: CASE EVENT DATE: 20201130
